FAERS Safety Report 18274760 (Version 1)
Quarter: 2020Q3

REPORT INFORMATION
  Report Type: Spontaneous
  Country: GB (occurrence: GB)
  Receive Date: 20200916
  Receipt Date: 20200916
  Transmission Date: 20201103
  Serious: Yes (Other)
  Sender: FDA-Public Use
  Company Number: GB-JNJFOC-20200908851

PATIENT
  Age: 38 Year
  Sex: Male

DRUGS (1)
  1. SIMPONI [Suspect]
     Active Substance: GOLIMUMAB
     Indication: RHEUMATOID ARTHRITIS
     Route: 058

REACTIONS (8)
  - Anxiety [Unknown]
  - Biopsy [Unknown]
  - Suicidal ideation [Unknown]
  - Polydipsia [Unknown]
  - Psoriasis [Unknown]
  - Lower respiratory tract infection [Unknown]
  - Depression [Unknown]
  - Pain [Unknown]

NARRATIVE: CASE EVENT DATE: 202001
